FAERS Safety Report 7282950-4 (Version None)
Quarter: 2011Q1

REPORT INFORMATION
  Report Type: 
  Country: None (occurrence: None)
  Receive Date: 20110209
  Receipt Date: 20110202
  Transmission Date: 20110831
  Serious: Yes (Other)
  Sender: FDA-Public Use
  Company Number: GB-AMGEN-UK064737

PATIENT
  Age: 80 Year
  Sex: Female

DRUGS (6)
  1. NEULASTA [Suspect]
     Indication: CHEMOTHERAPY
     Dosage: UNK UNK, UNK
     Dates: start: 20040110, end: 20040110
  2. RITUXIMAB [Suspect]
     Indication: LYMPHOMA
     Dosage: UNK UNK, UNK
     Route: 042
     Dates: start: 20031201
  3. PREDNISONE [Concomitant]
     Dosage: UNK UNK, UNK
     Dates: start: 20031201
  4. VINCRISTINE SULFATE [Concomitant]
     Dosage: UNK UNK, UNK
     Dates: start: 20031201
  5. CYCLOPHOSPHAMIDE [Concomitant]
     Dosage: UNK UNK, UNK
     Dates: start: 20031201
  6. DOXORUBICIN HCL [Concomitant]
     Dosage: UNK UNK, UNK
     Dates: start: 20031201

REACTIONS (3)
  - PAIN [None]
  - NEUTROPENIA [None]
  - THROMBOCYTOPENIA [None]
